FAERS Safety Report 8226304-2 (Version None)
Quarter: 2012Q1

REPORT INFORMATION
  Report Type: 
  Country: None (occurrence: None)
  Receive Date: 20120321
  Receipt Date: 20120319
  Transmission Date: 20120608
  Serious: Yes (Other)
  Sender: FDA-Public Use
  Company Number: GB-MERCK-1203GBR00066

PATIENT
  Age: 69 Year
  Sex: Female

DRUGS (5)
  1. JANUVIA [Suspect]
     Indication: TYPE 2 DIABETES MELLITUS
     Route: 048
     Dates: start: 20120223, end: 20120301
  2. METFORMIN [Concomitant]
     Route: 048
  3. RABEPRAZOLE SODIUM [Concomitant]
     Route: 048
  4. ESTRADIOL AND NORETHINDRONE ACETATE [Concomitant]
     Route: 048
  5. RAMIPRIL [Concomitant]
     Route: 048

REACTIONS (2)
  - INFLUENZA LIKE ILLNESS [None]
  - PAIN IN EXTREMITY [None]
